FAERS Safety Report 9736997 (Version 1)
Quarter: 2013Q4

REPORT INFORMATION
  Report Type: Spontaneous
  Country: US (occurrence: US)
  Receive Date: 20131206
  Receipt Date: 20131206
  Transmission Date: 20140711
  Serious: No
  Sender: FDA-Public Use
  Company Number: US-GILEAD-2009-0023094

PATIENT
  Sex: Male
  Weight: 83.91 kg

DRUGS (14)
  1. LETAIRIS [Suspect]
     Indication: PULMONARY ARTERIAL HYPERTENSION
     Route: 048
     Dates: start: 20090626
  2. AMITRIPTYLINE [Concomitant]
  3. CLONIDINE [Concomitant]
  4. GABAPENTIN [Concomitant]
  5. KETAMINE [Concomitant]
  6. KETOPROFEN [Concomitant]
  7. LECITHIN [Concomitant]
  8. POLOXAMER [Concomitant]
  9. REMODULIN [Concomitant]
  10. TRACLEER [Concomitant]
  11. PROVENTIL [Concomitant]
  12. FUROSEMIDE [Concomitant]
  13. OXYGEN [Concomitant]
  14. ADVAIR [Concomitant]

REACTIONS (2)
  - Weight decreased [Unknown]
  - Dry mouth [Unknown]
